FAERS Safety Report 8134484 (Version 5)
Quarter: 2013Q3

REPORT INFORMATION
  Report Type: Report from Study
  Country: US (occurrence: US)
  Receive Date: 20110913
  Receipt Date: 20130703
  Transmission Date: 20140515
  Serious: Yes (Other)
  Sender: FDA-Public Use
  Company Number: US-ABBOTT-11P-163-0852870-00

PATIENT
  Age: 58 Year
  Sex: Female
  Weight: 78.09 kg

DRUGS (21)
  1. HUMIRA [Suspect]
     Indication: RHEUMATOID ARTHRITIS
     Dates: start: 2009, end: 201101
  2. HUMIRA [Suspect]
     Dates: start: 201103, end: 201104
  3. HUMIRA [Suspect]
     Dates: start: 201106, end: 201107
  4. HUMIRA [Suspect]
     Dates: start: 201108
  5. METHOTREXATE [Suspect]
     Indication: PRODUCT USED FOR UNKNOWN INDICATION
  6. LEVOXYL [Concomitant]
     Indication: PRODUCT USED FOR UNKNOWN INDICATION
  7. HYDROCHLOROTHIAZIDE [Concomitant]
     Indication: FLUID RETENTION
  8. CELEBREX [Concomitant]
     Indication: RHEUMATOID ARTHRITIS
  9. NORCO [Concomitant]
     Indication: PAIN
     Dosage: 10/325 MG-QID AS NEEDED
  10. CONVALLARIA MAJALIS\CRATAEGUS LAEVIGATA LEAF\PROXYPHYLLINE [Concomitant]
     Indication: PRODUCT USED FOR UNKNOWN INDICATION
     Dosage: 2/200MG DAILY
  11. CALCIUM WITH VITAMIN D [Concomitant]
     Indication: PRODUCT USED FOR UNKNOWN INDICATION
     Dosage: DAILY
  12. FOLIC ACID [Concomitant]
     Indication: HEPATITIS C
     Dosage: 6 DAYS A WEEK
  13. ZOCOR [Concomitant]
     Indication: PRODUCT USED FOR UNKNOWN INDICATION
  14. NEBULIZER [Concomitant]
     Indication: RESPIRATORY TRACT CONGESTION
  15. XANAX [Concomitant]
     Indication: PANIC ATTACK
     Dosage: AT NIGHT
  16. XANAX [Concomitant]
     Indication: INSOMNIA
  17. TIZANIDINE [Concomitant]
     Indication: MUSCLE SPASMS
  18. FLECTOR [Concomitant]
     Indication: PRODUCT USED FOR UNKNOWN INDICATION
  19. LOVAZA [Concomitant]
     Indication: SUPPLEMENTATION THERAPY
     Dosage: 2000MG DAILY
  20. ALLOPURINOL [Concomitant]
     Indication: GOUT
  21. PREMARIN [Concomitant]
     Indication: PRODUCT USED FOR UNKNOWN INDICATION
     Dosage: TWICE WEEKLY

REACTIONS (12)
  - Catheterisation cardiac [Recovered/Resolved]
  - Arthroscopy [Recovered/Resolved]
  - Bronchitis [Recovered/Resolved]
  - Injection site pain [Recovered/Resolved]
  - Injection site vesicles [Recovered/Resolved]
  - Urinary tract infection [Not Recovered/Not Resolved]
  - Nausea [Unknown]
  - Platelet count decreased [Unknown]
  - Urinary tract infection [Unknown]
  - Urinary tract infection [Unknown]
  - Vitamin D decreased [Unknown]
  - Lethargy [Unknown]
